FAERS Safety Report 4383625-1 (Version None)
Quarter: 2004Q2

REPORT INFORMATION
  Report Type: 
  Country: None (occurrence: None)
  Receive Date: 20040618
  Receipt Date: 20040604
  Transmission Date: 20050107
  Serious: Yes (Hospitalization)
  Sender: FDA-Public Use
  Company Number: 199319

PATIENT
  Age: 51 Year
  Sex: Female
  Weight: 92.9874 kg

DRUGS (9)
  1. AVONEX [Suspect]
     Indication: MULTIPLE SCLEROSIS
     Dosage: 30 MCG QW IM
     Route: 030
     Dates: start: 19970101, end: 20030801
  2. AVONEX [Suspect]
     Indication: MULTIPLE SCLEROSIS
     Dosage: 30 MCG QW IM
     Route: 030
     Dates: start: 20030801
  3. METHOTREXATE [Concomitant]
  4. PREDNISONE [Concomitant]
  5. ARAVA [Concomitant]
  6. FOLIC ACID [Concomitant]
  7. VIOXX [Concomitant]
  8. BACLOFEN [Concomitant]
  9. TYLENOL W/ CODEINE [Concomitant]

REACTIONS (7)
  - INJECTION SITE HAEMORRHAGE [None]
  - INJECTION SITE INFECTION [None]
  - INJECTION SITE PAIN [None]
  - INJECTION SITE SWELLING [None]
  - LIMB INJURY [None]
  - LOCALISED OSTEOARTHRITIS [None]
  - SKIN LACERATION [None]
